APPROVED DRUG PRODUCT: ESOMEPRAZOLE MAGNESIUM
Active Ingredient: ESOMEPRAZOLE MAGNESIUM
Strength: EQ 20MG BASE
Dosage Form/Route: CAPSULE, DELAYED RELEASE;ORAL
Application: A216349 | Product #001
Applicant: GRAVITI PHARMACEUTICALS PRIVATE LTD
Approved: Jun 24, 2022 | RLD: No | RS: No | Type: OTC